FAERS Safety Report 10207103 (Version 1)
Quarter: 2014Q2

REPORT INFORMATION
  Report Type: Spontaneous
  Country: US (occurrence: None)
  Receive Date: 20140527
  Receipt Date: 20140527
  Transmission Date: 20141212
  Serious: Yes (Hospitalization)
  Sender: FDA-Public Use
  Company Number: None

PATIENT
  Age: 55 Year
  Sex: Female

DRUGS (4)
  1. METHADONE [Suspect]
     Indication: DRUG WITHDRAWAL SYNDROME
     Route: 048
     Dates: start: 20120629
  2. CITALOPRAM [Concomitant]
  3. HYDROCHLOROTHIAZIDE [Concomitant]
  4. LISINOPRIL [Concomitant]

REACTIONS (7)
  - Fall [None]
  - Laceration [None]
  - Somnolence [None]
  - Bradycardia [None]
  - Electrocardiogram QT prolonged [None]
  - Drug screen positive [None]
  - Torsade de pointes [None]
